FAERS Safety Report 7445787-9 (Version None)
Quarter: 2011Q2

REPORT INFORMATION
  Report Type: 
  Country: None (occurrence: None)
  Receive Date: 20110429
  Receipt Date: 20110415
  Transmission Date: 20111010
  Serious: Yes (Disabling, Other)
  Sender: FDA-Public Use
  Company Number: ES-CELGENEUS-144-21880-09041136

PATIENT
  Sex: Female
  Weight: 60 kg

DRUGS (6)
  1. DEXAMETHASONE [Suspect]
     Indication: MULTIPLE MYELOMA
     Dosage: 40 MILLIGRAM
     Route: 065
     Dates: start: 20081013, end: 20081016
  2. REVLIMID [Suspect]
     Indication: MULTIPLE MYELOMA
     Dosage: 25 MILLIGRAM
     Route: 048
     Dates: start: 20081013, end: 20081202
  3. FENTANYL [Concomitant]
     Indication: BONE PAIN
     Dosage: 25 MICROGRAM
     Route: 065
     Dates: start: 20060625
  4. FENTANYL [Concomitant]
     Indication: SURGERY
  5. MORPHINE [Concomitant]
     Route: 065
  6. MORPHINE [Concomitant]
     Indication: SURGERY

REACTIONS (2)
  - ACTIVITIES OF DAILY LIVING IMPAIRED [None]
  - ABNORMAL BEHAVIOUR [None]
